FAERS Safety Report 18048348 (Version 1)
Quarter: 2020Q3

REPORT INFORMATION
  Report Type: Spontaneous
  Country: US (occurrence: US)
  Receive Date: 20200720
  Receipt Date: 20200720
  Transmission Date: 20201103
  Serious: Yes (Other)
  Sender: FDA-Public Use
  Company Number: None

PATIENT
  Age: 73 Year
  Sex: Female
  Weight: 60.75 kg

DRUGS (5)
  1. BLUMEN CLEAR ADVANCED HAND SANITIZER [Suspect]
     Active Substance: ALCOHOL
     Indication: INFECTION PROPHYLAXIS
     Route: 061
     Dates: start: 20200401, end: 20200713
  2. ATORVASTATIN [Concomitant]
     Active Substance: ATORVASTATIN
  3. LOSARTAN. [Concomitant]
     Active Substance: LOSARTAN
  4. TOPROL XL [Concomitant]
     Active Substance: METOPROLOL SUCCINATE
  5. CLOPIDOGREL [Concomitant]
     Active Substance: CLOPIDOGREL BISULFATE

REACTIONS (4)
  - Dizziness [None]
  - Headache [None]
  - Recalled product administered [None]
  - Visual impairment [None]

NARRATIVE: CASE EVENT DATE: 20200701
